FAERS Safety Report 10733448 (Version 2)
Quarter: 2016Q1

REPORT INFORMATION
  Report Type: Report from Study
  Country: UA (occurrence: UA)
  Receive Date: 20150123
  Receipt Date: 20160201
  Transmission Date: 20160525
  Serious: Yes (Life-Threatening, Other)
  Sender: FDA-Public Use
  Company Number: UA-MYLANLABS-2015M1002007

PATIENT

DRUGS (5)
  1. TICAGRELOR [Suspect]
     Active Substance: TICAGRELOR
     Indication: ACUTE MYOCARDIAL INFARCTION
     Dosage: 90 MG, BID
     Route: 048
     Dates: start: 20141230
  2. ASPIRIN                            /00002701/ [Suspect]
     Active Substance: ASPIRIN
     Indication: ACUTE MYOCARDIAL INFARCTION
     Dosage: 300 MG, ONCE
     Route: 048
     Dates: start: 20141230, end: 20141230
  3. CLOPIDOGREL [Suspect]
     Active Substance: CLOPIDOGREL BISULFATE
     Indication: ACUTE MYOCARDIAL INFARCTION
     Dosage: 300 MG, ONCE
     Route: 048
     Dates: start: 20141230, end: 20141230
  4. FONDAPARINUX [Suspect]
     Active Substance: FONDAPARINUX
     Indication: ACUTE MYOCARDIAL INFARCTION
     Dosage: 2.5 MG, ONCE
     Route: 058
     Dates: start: 20141230, end: 20141230
  5. HEPARIN [Suspect]
     Active Substance: HEPARIN SODIUM
     Indication: ACUTE MYOCARDIAL INFARCTION
     Dosage: 10000 IU, ONCE
     Route: 013
     Dates: start: 20141230, end: 20141230

REACTIONS (2)
  - Medication error [Unknown]
  - Catheter site haemorrhage [Recovered/Resolved with Sequelae]

NARRATIVE: CASE EVENT DATE: 20141230
